FAERS Safety Report 14320262 (Version 1)
Quarter: 2017Q4

REPORT INFORMATION
  Report Type: Spontaneous
  Country: US (occurrence: US)
  Receive Date: 20171222
  Receipt Date: 20171222
  Transmission Date: 20180321
  Serious: No
  Sender: FDA-Public Use
  Company Number: None

PATIENT
  Age: 44 Year
  Sex: Female
  Weight: 52.2 kg

DRUGS (7)
  1. TRETINOIN 0.05% CREAM [Suspect]
     Active Substance: TRETINOIN
     Indication: ACNE
     Dosage: QUANTITY:1 APPLICATION;?
     Route: 061
     Dates: start: 20170922, end: 20171222
  2. MVI [Concomitant]
     Active Substance: VITAMINS
  3. CA+ AND D3 [Concomitant]
  4. DOXYCYCLINE HYCLATE. [Concomitant]
     Active Substance: DOXYCYCLINE HYCLATE
  5. IBUPROFEN. [Concomitant]
     Active Substance: IBUPROFEN
  6. NORCO [Concomitant]
     Active Substance: ACETAMINOPHEN\HYDROCODONE BITARTRATE
  7. LATUDA [Concomitant]
     Active Substance: LURASIDONE HYDROCHLORIDE

REACTIONS (3)
  - Drug ineffective [None]
  - Product quality issue [None]
  - Seborrhoea [None]

NARRATIVE: CASE EVENT DATE: 20170922
